FAERS Safety Report 4868569-0 (Version None)
Quarter: 2005Q4

REPORT INFORMATION
  Report Type: 
  Country: None (occurrence: None)
  Receive Date: 20051223
  Receipt Date: 20051214
  Transmission Date: 20060501
  Serious: Yes (Death, Other)
  Sender: FDA-Public Use
  Company Number: 2005169799

PATIENT
  Sex: Male

DRUGS (3)
  1. CELEBREX [Suspect]
     Indication: ARTHRITIS
     Dates: start: 20001221, end: 20010313
  2. BEXTRA [Suspect]
     Indication: ARTHRITIS
     Dates: start: 20020913
  3. VIOXX [Suspect]
     Indication: ARTHRITIS
     Dates: start: 20001221, end: 20020721

REACTIONS (1)
  - MYOCARDIAL INFARCTION [None]
